FAERS Safety Report 16183855 (Version 1)
Quarter: 2019Q2

REPORT INFORMATION
  Report Type: Spontaneous
  Country: IT (occurrence: IT)
  Receive Date: 20190411
  Receipt Date: 20190411
  Transmission Date: 20190711
  Serious: Yes (Hospitalization)
  Sender: FDA-Public Use
  Company Number: IT-TEVA-2019-IT-1035796

PATIENT
  Age: 70 Year
  Sex: Male

DRUGS (8)
  1. ALMARYTM 100 MG COMPRESSE [Suspect]
     Active Substance: FLECAINIDE ACETATE
     Indication: ATRIAL FIBRILLATION
     Dosage: 2 DOSAGE FORMS DAILY;
     Route: 048
     Dates: start: 20180101, end: 20190119
  2. CARDICOR 3,75 MG COMPRESSE RIVESTITE CON FILM [Suspect]
     Active Substance: BISOPROLOL
     Indication: HYPERTENSION
     Dosage: .5 MILLIGRAM DAILY;
     Route: 048
     Dates: start: 20180101, end: 20190119
  3. LUVION (CANRENOIC ACID) [Suspect]
     Active Substance: CANRENOIC ACID
     Indication: HYPERTENSION
     Dosage: .5 DOSAGE FORMS DAILY;
     Route: 048
     Dates: start: 20180101, end: 20190119
  4. ALIFLUS DISKUS 50 MICROGRAMMI/100 MICROGRAMMI/DOSE DI POLVERE PER INAL [Concomitant]
     Dosage: DOSE OF DUST FOR INAL
     Route: 055
  5. TAMSULOSIN HYDROCHLORIDE. [Suspect]
     Active Substance: TAMSULOSIN HYDROCHLORIDE
     Indication: BENIGN PROSTATIC HYPERPLASIA
     Dosage: .4 MILLIGRAM DAILY;
     Route: 048
     Dates: start: 20180101, end: 20190119
  6. FOLINA [FOLIC ACID] [Concomitant]
     Active Substance: FOLIC ACID
     Route: 048
  7. LANSOX 15 MG CAPSULE RIGIDE [Concomitant]
     Route: 048
  8. SPIRIVA RESPIMAT [Concomitant]
     Active Substance: TIOTROPIUM BROMIDE
     Route: 055

REACTIONS (1)
  - Loss of consciousness [Unknown]

NARRATIVE: CASE EVENT DATE: 20190119
